FAERS Safety Report 6878762-3 (Version None)
Quarter: 2010Q3

REPORT INFORMATION
  Report Type: 
  Country: None (occurrence: None)
  Receive Date: 20100728
  Receipt Date: 20100714
  Transmission Date: 20110219
  Serious: Yes (Hospitalization)
  Sender: FDA-Public Use
  Company Number: DE-BAYER-201030039GPV

PATIENT
  Age: 57 Year
  Sex: Male
  Weight: 60 kg

DRUGS (1)
  1. BETAFERON [Suspect]
     Indication: MULTIPLE SCLEROSIS
     Dates: start: 20050101

REACTIONS (7)
  - CELLULITIS [None]
  - IMPAIRED HEALING [None]
  - INDURATION [None]
  - INFLAMMATION [None]
  - INJECTION SITE DRYNESS [None]
  - INJECTION SITE PRURITUS [None]
  - PROCEDURAL SITE REACTION [None]
